FAERS Safety Report 8596978-5 (Version None)
Quarter: 2012Q3

REPORT INFORMATION
  Report Type: 
  Country: None (occurrence: None)
  Receive Date: 20120815
  Receipt Date: 20120803
  Transmission Date: 20120928
  Serious: Yes (Hospitalization)
  Sender: FDA-Public Use
  Company Number: MY-ROCHE-1099950

PATIENT
  Age: 73 Year
  Sex: Male

DRUGS (1)
  1. TENECTEPLASE [Suspect]
     Indication: MYOCARDIAL INFARCTION
     Route: 042
     Dates: start: 20120802, end: 20120802

REACTIONS (4)
  - TRANSIENT ISCHAEMIC ATTACK [None]
  - SOMNOLENCE [None]
  - HYPOTENSION [None]
  - DIZZINESS [None]
